FAERS Safety Report 10045328 (Version 1)
Quarter: 2014Q1

REPORT INFORMATION
  Report Type: Spontaneous
  Country: US (occurrence: None)
  Receive Date: 20140306
  Receipt Date: 20140306
  Transmission Date: 20141002
  Serious: Yes (Other)
  Sender: FDA-Public Use
  Company Number: 163-21880-13044827

PATIENT
  Age: 78 Year
  Sex: Male

DRUGS (21)
  1. REVLIMID (LENALIDOMIDE) (15 MILLIGRAM, CAPSULES) [Suspect]
     Indication: B-CELL LYMPHOMA STAGE IV
     Dosage: 21 IN 28 D
     Route: 048
     Dates: start: 20130423
  2. WARFARIN [Concomitant]
  3. CARDURA (DOXAZOSIN MESILATE) [Concomitant]
  4. LIPITOR (ATORVASTATIN) [Concomitant]
  5. ZETIA (EZETIMIBE) [Concomitant]
  6. ACYCLOVIR (ACICLOVIR) [Concomitant]
  7. ISOSORBIDE MONONITRATE [Concomitant]
  8. NEURONTIN (GABAPENTIN) [Concomitant]
  9. OXYCONTIN (OXYCODONE HYDROCHLORIDE) [Concomitant]
  10. PAXIL (PAROXETINE HYDROCHLORIDE) [Concomitant]
  11. PLAVIX (CLOPIDOGREL SULFATE) [Concomitant]
  12. POTASSIUM CHLORIDE [Concomitant]
  13. PRILOSEC (OMEPRAZOLE) [Concomitant]
  14. PROCHLORPERAZINE [Concomitant]
  15. SYNTHROID (LEVOTHYROXINE SODIUM) [Concomitant]
  16. TOPROL XL (METOPROLOL SUCCINATE) [Concomitant]
  17. TYLENOL-CODEINE NO. 3 (PANADEINE CO) [Concomitant]
  18. NEOSPORIN (NEOSPORIN POWDER) [Concomitant]
  19. INSULIN DETEMIR [Concomitant]
  20. LOMOTIL [Concomitant]
  21. PERCOCET (OXYCOCET) [Concomitant]

REACTIONS (4)
  - Rectal haemorrhage [None]
  - Bleeding time prolonged [None]
  - Faeces pale [None]
  - Diarrhoea [None]
